FAERS Safety Report 4401490-0 (Version None)
Quarter: 2004Q3

REPORT INFORMATION
  Report Type: 
  Country: None (occurrence: None)
  Receive Date: 20040719
  Receipt Date: 20040708
  Transmission Date: 20050211
  Serious: Yes (Other)
  Sender: FDA-Public Use
  Company Number: US-AMGEN-US083099

PATIENT
  Sex: Female
  Weight: 156.2 kg

DRUGS (8)
  1. ENBREL [Suspect]
     Indication: ANKYLOSING SPONDYLITIS
     Route: 058
     Dates: start: 20031101
  2. FLEXERIL [Concomitant]
  3. NEXIUM [Concomitant]
  4. PROZAC [Concomitant]
  5. ACTOS [Concomitant]
  6. LORTAB [Concomitant]
  7. ATIVAN [Concomitant]
  8. ESTRATEST [Concomitant]

REACTIONS (1)
  - MEDIASTINAL MASS [None]
